FAERS Safety Report 12508415 (Version 1)
Quarter: 2016Q2

REPORT INFORMATION
  Report Type: Report from Study
  Country: PT (occurrence: PT)
  Receive Date: 20160629
  Receipt Date: 20160629
  Transmission Date: 20160815
  Serious: Yes (Death, Other)
  Sender: FDA-Public Use
  Company Number: PT-PFIZER INC-2016307544

PATIENT
  Age: 57 Year
  Sex: Male

DRUGS (1)
  1. SUNITINIB MALATE. [Suspect]
     Active Substance: SUNITINIB MALATE
     Indication: METASTATIC RENAL CELL CARCINOMA
     Dosage: 50 MG, DAILY
     Dates: start: 200712, end: 200806

REACTIONS (5)
  - Fatigue [Unknown]
  - Thrombocytopenia [Unknown]
  - Decreased appetite [Unknown]
  - Death [Fatal]
  - Hypertension [Unknown]
